FAERS Safety Report 8964154 (Version 2)
Quarter: 2013Q1

REPORT INFORMATION
  Report Type: Spontaneous
  Country: US (occurrence: US)
  Receive Date: 20121214
  Receipt Date: 20130125
  Transmission Date: 20140127
  Serious: Yes (Other)
  Sender: FDA-Public Use
  Company Number: US-PFIZER INC-2012315572

PATIENT
  Age: 54 Year
  Sex: Female
  Weight: 108.84 kg

DRUGS (2)
  1. LYRICA [Suspect]
     Indication: FIBROMYALGIA
     Dosage: 150 MG, 2X/DAY
     Route: 048
  2. PERCOCET [Concomitant]
     Dosage: UNK

REACTIONS (5)
  - Fibromyalgia [Unknown]
  - Dependence [Unknown]
  - Pain in extremity [Unknown]
  - Back pain [Unknown]
  - Neck pain [Unknown]
